FAERS Safety Report 9357691 (Version 2)
Quarter: 2013Q4

REPORT INFORMATION
  Report Type: Spontaneous
  Country: NO (occurrence: NO)
  Receive Date: 20130620
  Receipt Date: 20131016
  Transmission Date: 20140711
  Serious: Yes (Hospitalization, Disabling, Other)
  Sender: FDA-Public Use
  Company Number: NO-PFIZER INC-2013184541

PATIENT
  Age: 53 Year
  Sex: Female

DRUGS (3)
  1. NEURONTIN [Suspect]
     Indication: NEURALGIA
     Dosage: 3.6 G 1X/DAY
     Route: 048
     Dates: start: 2000, end: 201302
  2. STESOLID [Concomitant]
     Indication: RESTLESSNESS
     Dosage: 5 MG, UNK
     Dates: start: 201302
  3. IMOVANE [Concomitant]
     Indication: INSOMNIA
     Dosage: 5 MG, UNK
     Dates: start: 201302

REACTIONS (12)
  - Intentional drug misuse [Not Recovered/Not Resolved]
  - Withdrawal syndrome [Not Recovered/Not Resolved]
  - Suicidal ideation [Unknown]
  - Generalised anxiety disorder [Recovering/Resolving]
  - Depression [Recovered/Resolved]
  - Delusion [Unknown]
  - Stupor [Unknown]
  - Restlessness [Recovering/Resolving]
  - Fatigue [Recovered/Resolved]
  - Lethargy [Recovered/Resolved]
  - Apathy [Recovered/Resolved]
  - Activities of daily living impaired [Recovered/Resolved with Sequelae]
